FAERS Safety Report 19113869 (Version 1)
Quarter: 2021Q2

REPORT INFORMATION
  Report Type: Spontaneous
  Country: US (occurrence: US)
  Receive Date: 20210409
  Receipt Date: 20210409
  Transmission Date: 20210717
  Serious: Yes (Hospitalization)
  Sender: FDA-Public Use
  Company Number: None

PATIENT
  Sex: Female

DRUGS (1)
  1. REBIF [Suspect]
     Active Substance: INTERFERON BETA-1A
     Indication: MULTIPLE SCLEROSIS
     Dosage: ?          OTHER DOSE:1 SYR;OTHER FREQUENCY:Q ?M?W?F;?
     Route: 058
     Dates: start: 20200123

REACTIONS (2)
  - Pain in extremity [None]
  - Cerebrovascular accident [None]
